FAERS Safety Report 9241910 (Version 2)
Quarter: 2013Q2

REPORT INFORMATION
  Report Type: Spontaneous
  Country: US (occurrence: US)
  Receive Date: 20130419
  Receipt Date: 20130606
  Transmission Date: 20140414
  Serious: Yes (Death)
  Sender: FDA-Public Use
  Company Number: US-PURDUE-USA-2013-0101013

PATIENT
  Age: 84 Year
  Sex: Female

DRUGS (1)
  1. BUTRANS [Suspect]
     Indication: PAIN MANAGEMENT
     Dosage: 5 MCG/HR, UNK
     Route: 062
     Dates: start: 20130222, end: 20130319

REACTIONS (4)
  - Failure to thrive [Fatal]
  - Cardiac failure congestive [Fatal]
  - Chronic obstructive pulmonary disease [Fatal]
  - Hypertension [Fatal]
